FAERS Safety Report 13396808 (Version 1)
Quarter: 2017Q2

REPORT INFORMATION
  Report Type: Spontaneous
  Country: SK (occurrence: SK)
  Receive Date: 20170403
  Receipt Date: 20170403
  Transmission Date: 20170830
  Serious: Yes (Death)
  Sender: FDA-Public Use
  Company Number: SK-UNITED THERAPEUTICS-UNT-2017-004458

PATIENT
  Age: 76 Year
  Sex: Male
  Weight: 84.99 kg

DRUGS (1)
  1. REMODULIN [Suspect]
     Active Substance: TREPROSTINIL
     Indication: PULMONARY HYPERTENSION
     Dosage: 0.025 ?G/KG, CONTINUING
     Route: 058
     Dates: start: 20161013, end: 20170323

REACTIONS (2)
  - Cardiopulmonary failure [Fatal]
  - Off label use [Unknown]

NARRATIVE: CASE EVENT DATE: 20170323
